FAERS Safety Report 13812309 (Version 1)
Quarter: 2017Q3

REPORT INFORMATION
  Report Type: Report from Study
  Country: US (occurrence: US)
  Receive Date: 20170728
  Receipt Date: 20170728
  Transmission Date: 20171127
  Serious: No
  Sender: FDA-Public Use
  Company Number: US-AMGEN-USASL2017101280

PATIENT
  Age: 64 Year
  Sex: Female

DRUGS (1)
  1. REPATHA [Suspect]
     Active Substance: EVOLOCUMAB
     Indication: PRODUCT USED FOR UNKNOWN INDICATION
     Dosage: 140 MG, Q2WK
     Route: 065

REACTIONS (9)
  - Musculoskeletal disorder [Unknown]
  - Blood glucose increased [Recovering/Resolving]
  - Pain in extremity [Unknown]
  - Headache [Unknown]
  - Hormone level abnormal [Unknown]
  - Thyroid disorder [Unknown]
  - Myalgia [Unknown]
  - Dizziness [Unknown]
  - Memory impairment [Recovering/Resolving]
